FAERS Safety Report 4631423-3 (Version None)
Quarter: 2005Q2

REPORT INFORMATION
  Report Type: 
  Country: None (occurrence: None)
  Receive Date: 20050407
  Receipt Date: 20050324
  Transmission Date: 20051028
  Serious: Yes (Hospitalization)
  Sender: FDA-Public Use
  Company Number: 2004UW13035

PATIENT
  Age: 62 Year
  Sex: Male
  Weight: 69.6725 kg

DRUGS (8)
  1. DOCETAXEL [Suspect]
     Dosage: 70 MG/M2 Q3WK IV
     Route: 042
     Dates: start: 20040610, end: 20040610
  2. ASPIRIN [Concomitant]
  3. LOPRESSOR [Concomitant]
  4. LASIX [Concomitant]
  5. K-DUR 10 [Concomitant]
  6. PROTONIX [Concomitant]
  7. XANAX [Concomitant]
  8. HYDROCODONE BITARTRATE [Concomitant]

REACTIONS (5)
  - ASTHENIA [None]
  - HYPOVOLAEMIA [None]
  - NAUSEA [None]
  - NEUTROPENIA [None]
  - VOMITING [None]
